FAERS Safety Report 8014891-9 (Version None)
Quarter: 2011Q4

REPORT INFORMATION
  Report Type: 
  Country: None (occurrence: None)
  Receive Date: 20111229
  Receipt Date: 20111219
  Transmission Date: 20120403
  Serious: Yes (Hospitalization)
  Sender: FDA-Public Use
  Company Number: BE-ABBOTT-11P-013-0880479-00

PATIENT
  Age: 77 Year
  Sex: Male
  Weight: 67 kg

DRUGS (16)
  1. HUMIRA [Suspect]
     Route: 058
     Dates: start: 20111004
  2. MEDROL [Concomitant]
     Indication: RHEUMATOID ARTHRITIS
     Dates: start: 20110811
  3. FELDENE [Concomitant]
     Indication: RHEUMATOID ARTHRITIS
     Dates: start: 20110811, end: 20110922
  4. TRAMADOL HCL [Concomitant]
     Indication: RHEUMATOID ARTHRITIS
     Dates: start: 20110811, end: 20110922
  5. CALCIUM CARBONATE [Concomitant]
     Indication: OSTEOPOROSIS PROPHYLAXIS
     Dates: start: 20090101
  6. FOLIC ACID [Concomitant]
     Indication: VITAMIN SUPPLEMENTATION
     Dates: start: 20110922
  7. TRAMADOL HCL [Concomitant]
     Dates: start: 20110923, end: 20111101
  8. VALTRAN [Concomitant]
     Indication: RHEUMATOID ARTHRITIS
     Dates: start: 20110811, end: 20110922
  9. OXYBUTYNINE [Concomitant]
     Indication: URGE INCONTINENCE
     Dates: start: 20110401
  10. OXYBUTYNINE [Concomitant]
  11. D-CURE [Concomitant]
     Indication: OSTEOPOROSIS PROPHYLAXIS
     Dates: start: 20090101
  12. METHOTREXATE [Suspect]
     Indication: RHEUMATOID ARTHRITIS
     Route: 048
     Dates: start: 20110920
  13. PANTOPRAZOLE [Concomitant]
     Indication: PROPHYLAXIS AGAINST GASTROINTESTINAL ULCER
     Dates: start: 20100101
  14. HUMIRA [Suspect]
     Indication: RHEUMATOID ARTHRITIS
     Dosage: BASELINE
     Route: 058
     Dates: start: 20110920, end: 20110920
  15. ZESTRIL [Concomitant]
     Indication: HYPERTENSION
     Dates: start: 20080101
  16. AMLODIPINE [Concomitant]
     Indication: HYPERTENSION
     Dates: start: 20060101

REACTIONS (1)
  - CHEST PAIN [None]
